FAERS Safety Report 10913758 (Version 1)
Quarter: 2015Q1

REPORT INFORMATION
  Report Type: Spontaneous
  Country: US (occurrence: None)
  Receive Date: 20150128
  Receipt Date: 20150128
  Transmission Date: 20150721
  Serious: No
  Sender: FDA-Public Use
  Company Number: 2014TUS013356

PATIENT
  Age: 42 Year
  Sex: Female
  Weight: 74.4 kg

DRUGS (2)
  1. BRINTELLIX [Suspect]
     Active Substance: VORTIOXETINE HYDROBROMIDE
     Indication: DEPRESSION
     Route: 048
     Dates: start: 20140328, end: 20141201
  2. BRINTELLIX [Suspect]
     Active Substance: VORTIOXETINE HYDROBROMIDE
     Indication: ANXIETY
     Route: 048
     Dates: start: 20140328, end: 20141201

REACTIONS (2)
  - Paraesthesia [None]
  - Tinnitus [None]

NARRATIVE: CASE EVENT DATE: 20140401
